FAERS Safety Report 15790551 (Version 2)
Quarter: 2019Q1

REPORT INFORMATION
  Report Type: Spontaneous
  Country: US (occurrence: US)
  Receive Date: 20190104
  Receipt Date: 20190109
  Transmission Date: 20190417
  Serious: Yes (Other)
  Sender: FDA-Public Use
  Company Number: US-AMGEN-USASP2019000315

PATIENT
  Age: 65 Year
  Sex: Female

DRUGS (2)
  1. NEUPOGEN [Suspect]
     Active Substance: FILGRASTIM
     Indication: LEUKAPHERESIS
     Dosage: 5 OR 10 MCG/KG QD X 5 DAYS
     Route: 065
     Dates: start: 20181130, end: 20181204
  2. NEUPOGEN [Suspect]
     Active Substance: FILGRASTIM
     Indication: HAEMATOPOIETIC STEM CELL MOBILISATION

REACTIONS (2)
  - Drug effect incomplete [Unknown]
  - Transplant [Unknown]

NARRATIVE: CASE EVENT DATE: 20181204
